FAERS Safety Report 25761565 (Version 1)
Quarter: 2025Q3

REPORT INFORMATION
  Report Type: Spontaneous
  Country: CA (occurrence: CA)
  Receive Date: 20250904
  Receipt Date: 20250904
  Transmission Date: 20251021
  Serious: No
  Sender: ALEXION PHARMACEUTICALS
  Company Number: CA-AstraZeneca-CH-00932951AP

PATIENT
  Age: 64 Year
  Sex: Female

DRUGS (1)
  1. BREZTRI [Suspect]
     Active Substance: BUDESONIDE\FORMOTEROL\GLYCOPYRROLATE
     Indication: Chronic obstructive pulmonary disease
     Dosage: 160 MICROGRAM, QID
     Dates: start: 20250811, end: 20250818

REACTIONS (4)
  - Product dose omission issue [Unknown]
  - Device delivery system issue [Unknown]
  - Intentional device misuse [Unknown]
  - Device malfunction [Unknown]

NARRATIVE: CASE EVENT DATE: 20250811
